FAERS Safety Report 8102538-2 (Version None)
Quarter: 2012Q1

REPORT INFORMATION
  Report Type: 
  Country: None (occurrence: None)
  Receive Date: 20120201
  Receipt Date: 20120124
  Transmission Date: 20120608
  Serious: Yes (Other)
  Sender: FDA-Public Use
  Company Number: ES-SANOFI-AVENTIS-2012SA005176

PATIENT
  Age: 62 Year
  Sex: Female
  Weight: 68.8 kg

DRUGS (13)
  1. FLUOXETINE [Concomitant]
     Indication: DEPRESSION
     Dates: start: 20110501
  2. ASPIRIN [Concomitant]
     Dates: start: 20110210
  3. METFORMIN HCL [Concomitant]
     Indication: DIABETES MELLITUS
     Dates: start: 20050101
  4. INSULIN GLARGINE [Suspect]
     Indication: TYPE 2 DIABETES MELLITUS
     Route: 058
     Dates: start: 20110301
  5. LEVOTHYROXINE SODIUM [Concomitant]
     Indication: HYPOTHYROIDISM
     Dates: start: 19870101
  6. OMEPRAZOLE [Concomitant]
     Dates: start: 20000101
  7. AMITRIPTYLINE HCL [Concomitant]
     Indication: DEPRESSION
     Dates: start: 20110801
  8. INSULIN LISPRO [Suspect]
     Route: 058
     Dates: start: 20120104
  9. LOSARTAN POTASSIUM [Concomitant]
     Indication: HYPERTENSION
     Dates: start: 19970101
  10. INSULIN GLARGINE [Suspect]
     Route: 058
     Dates: start: 20110928
  11. INSULIN GLARGINE [Suspect]
     Route: 058
     Dates: start: 20120104
  12. LORAZEPAM [Concomitant]
     Indication: DEPRESSION
     Dates: start: 20040101
  13. INSULIN LISPRO [Suspect]
     Indication: TYPE 2 DIABETES MELLITUS
     Route: 058
     Dates: start: 20110928

REACTIONS (2)
  - BLINDNESS [None]
  - RETINAL VEIN OCCLUSION [None]
